FAERS Safety Report 25957085 (Version 1)
Quarter: 2025Q4

REPORT INFORMATION
  Report Type: Spontaneous
  Country: US (occurrence: US)
  Receive Date: 20251024
  Receipt Date: 20251024
  Transmission Date: 20260117
  Serious: Yes (Hospitalization)
  Sender: TEVA
  Company Number: US-TEVA-VS-3383511

PATIENT
  Age: 52 Year
  Sex: Female

DRUGS (2)
  1. HYDROCORTISONE [Suspect]
     Active Substance: HYDROCORTISONE
     Indication: Product used for unknown indication
     Route: 065
  2. FLUDROCORTISONE [Suspect]
     Active Substance: FLUDROCORTISONE
     Indication: Product used for unknown indication
     Dosage: (SPLIT DAILY)
     Route: 065

REACTIONS (7)
  - Blood pressure decreased [Recovering/Resolving]
  - Mental disorder [Unknown]
  - Blood pressure increased [Recovering/Resolving]
  - Dehydration [Unknown]
  - Fatigue [Unknown]
  - Weight increased [Recovering/Resolving]
  - Overdose [Unknown]

NARRATIVE: CASE EVENT DATE: 20250201
